FAERS Safety Report 25273090 (Version 1)
Quarter: 2025Q2

REPORT INFORMATION
  Report Type: Report from Study
  Country: US (occurrence: US)
  Receive Date: 20250506
  Receipt Date: 20250506
  Transmission Date: 20250716
  Serious: Yes (Other)
  Sender: GRIFOLS
  Company Number: US-IGSA-BIG0034818

PATIENT
  Age: 64 Year
  Sex: Male
  Weight: 68.481 kg

DRUGS (5)
  1. PROLASTIN-C LIQUID [Suspect]
     Active Substance: .ALPHA.1-PROTEINASE INHIBITOR HUMAN
     Indication: Alpha-1 antitrypsin deficiency
     Dosage: 4264 MILLIGRAM, Q.WK.
     Route: 042
  2. PROLASTIN-C LIQUID [Suspect]
     Active Substance: .ALPHA.1-PROTEINASE INHIBITOR HUMAN
     Dosage: 4264 MILLIGRAM, Q.WK.
     Route: 042
  3. EPINEPHRINE [Concomitant]
     Active Substance: EPINEPHRINE
     Route: 065
  4. HEPARIN [Concomitant]
     Active Substance: HEPARIN SODIUM
     Route: 065
  5. SODIUM CHLORIDE [Concomitant]
     Active Substance: SODIUM CHLORIDE
     Route: 065

REACTIONS (7)
  - Hallucination [Recovered/Resolved]
  - Unresponsive to stimuli [Recovered/Resolved]
  - Somnolence [Recovered/Resolved]
  - Sluggishness [Recovered/Resolved]
  - Dysarthria [Recovered/Resolved]
  - Fatigue [Recovered/Resolved]
  - Dyspnoea [Unknown]

NARRATIVE: CASE EVENT DATE: 20250415
